FAERS Safety Report 6435077-5 (Version None)
Quarter: 2009Q4

REPORT INFORMATION
  Report Type: 
  Country: None (occurrence: None)
  Receive Date: 20091109
  Receipt Date: 20091109
  Transmission Date: 20100525
  Serious: Yes (Other)
  Sender: FDA-Public Use
  Company Number: None

PATIENT
  Age: 53 Year
  Sex: Female
  Weight: 73.4827 kg

DRUGS (1)
  1. CLONIDINE TRANSDERMAL SYSTEM 0.3 MG/DAY AVEVA FOR PAR PHARMACEUTICAL [Suspect]
     Indication: HYPERTENSION
     Dosage: 0.3 X 2, TOTAL OF 0.6/DAY WEEKLY TRANSDERMAL
     Route: 062
     Dates: start: 20090902

REACTIONS (2)
  - PRODUCT ADHESION ISSUE [None]
  - PRODUCT SUBSTITUTION ISSUE [None]
